FAERS Safety Report 10209326 (Version 2)
Quarter: 2014Q2

REPORT INFORMATION
  Report Type: Report from Study
  Country: RO (occurrence: RO)
  Receive Date: 20140531
  Receipt Date: 20140609
  Transmission Date: 20141212
  Serious: Yes (Other)
  Sender: FDA-Public Use
  Company Number: RO-ROCHE-1408799

PATIENT
  Age: 54 Year
  Sex: Female
  Weight: 85 kg

DRUGS (5)
  1. PEG-INTERFERON ALFA 2A [Suspect]
     Indication: CHRONIC HEPATITIS C
     Route: 058
     Dates: start: 20131029, end: 20131219
  2. PEG-INTERFERON ALFA 2A [Suspect]
     Route: 058
     Dates: start: 20131219, end: 20140220
  3. PEG-INTERFERON ALFA 2A [Suspect]
     Route: 058
     Dates: start: 20140220
  4. RIBAVIRIN [Suspect]
     Indication: CHRONIC HEPATITIS C
     Route: 048
     Dates: start: 20131029
  5. FOLIC ACID [Concomitant]
     Indication: ANAEMIA
     Route: 048
     Dates: start: 20131128

REACTIONS (1)
  - Oropharyngeal pain [Recovered/Resolved]
